FAERS Safety Report 7901955-0 (Version None)
Quarter: 2011Q4

REPORT INFORMATION
  Report Type: 
  Country: None (occurrence: None)
  Receive Date: 20111108
  Receipt Date: 20111030
  Transmission Date: 20120403
  Serious: Yes (Hospitalization)
  Sender: FDA-Public Use
  Company Number: NZ-B.I. PHARMACEUTICALS,INC./RIDGEFIELD-2011-AU-00922AU

PATIENT
  Sex: Female
  Weight: 91 kg

DRUGS (9)
  1. DIAMICRON [Concomitant]
  2. PRADAXA [Suspect]
     Indication: ATRIAL FIBRILLATION
     Dosage: 300 MG
     Dates: start: 20110727, end: 20110803
  3. CHOLECALCIFEROL [Concomitant]
  4. BEZALIP [Concomitant]
  5. METOPROLOL SUCCINATE [Concomitant]
  6. DILTIAZEM HCL [Concomitant]
  7. INHIBACE [Concomitant]
     Dosage: 5MG/12.5
  8. LIPITOR [Concomitant]
  9. CARTIA XT [Concomitant]

REACTIONS (2)
  - FALL [None]
  - EPISTAXIS [None]
